FAERS Safety Report 25301925 (Version 1)
Quarter: 2025Q2

REPORT INFORMATION
  Report Type: Spontaneous
  Country: US (occurrence: None)
  Receive Date: 20250512
  Receipt Date: 20250512
  Transmission Date: 20250716
  Serious: Yes (Hospitalization)
  Sender: FDA-CTU
  Company Number: None

PATIENT
  Age: 54 Year
  Sex: Female
  Weight: 99 kg

DRUGS (1)
  1. ZEPBOUND [Suspect]
     Active Substance: TIRZEPATIDE
     Indication: Overweight
     Route: 058
     Dates: start: 20250507, end: 20250507

REACTIONS (6)
  - Influenza like illness [None]
  - Fatigue [None]
  - Chills [None]
  - Nausea [None]
  - Impaired work ability [None]
  - Migraine [None]

NARRATIVE: CASE EVENT DATE: 20250507
